FAERS Safety Report 14285638 (Version 4)
Quarter: 2018Q3

REPORT INFORMATION
  Report Type: Spontaneous
  Country: US (occurrence: US)
  Receive Date: 20171214
  Receipt Date: 20180730
  Transmission Date: 20181010
  Serious: No
  Sender: FDA-Public Use
  Company Number: US-PFIZER INC-2017532985

PATIENT
  Age: 8 Year
  Sex: Female
  Weight: 22.68 kg

DRUGS (6)
  1. GENOTROPIN [Suspect]
     Active Substance: SOMATROPIN
     Indication: GROWTH HORMONE DEFICIENCY
     Dosage: 0.8 MG, ALTERNATE DAY (ALTERNATING BETWEEN 0.6 MG AND 0.8 MG DAILY)
  2. GENOTROPIN [Suspect]
     Active Substance: SOMATROPIN
     Dosage: 0.8 MG, ALTERNATE DAY  (ALTERNATING BETWEEN 1.0 MG AND 0.8 MG DAILY)
     Dates: start: 20160121
  3. GENOTROPIN [Suspect]
     Active Substance: SOMATROPIN
     Dosage: 1 MG, ALTERNATE DAY  (ALTERNATING BETWEEN 1.0 MG AND 0.8 MG DAILY)
     Dates: start: 20160121
  4. GENOTROPIN [Suspect]
     Active Substance: SOMATROPIN
     Dosage: 0.8 MG, 1X/DAY (EVERY NIGHT)
     Route: 058
  5. GENOTROPIN [Suspect]
     Active Substance: SOMATROPIN
     Indication: TURNER^S SYNDROME
     Dosage: 0.6 MG, ALTERNATE DAY (ALTERNATING BETWEEN 0.6 MG AND 0.8 MG DAILY)
  6. GENOTROPIN [Suspect]
     Active Substance: SOMATROPIN
     Dosage: 0.9 MG, DAILY

REACTIONS (2)
  - Drug prescribing error [Unknown]
  - Pain in extremity [Recovered/Resolved]

NARRATIVE: CASE EVENT DATE: 201712
